FAERS Safety Report 14259175 (Version 1)
Quarter: 2017Q4

REPORT INFORMATION
  Report Type: Spontaneous
  Country: US (occurrence: US)
  Receive Date: 20171207
  Receipt Date: 20171207
  Transmission Date: 20180321
  Serious: No
  Sender: FDA-Public Use
  Company Number: None

PATIENT
  Age: 29 Year
  Sex: Female
  Weight: 63.9 kg

DRUGS (1)
  1. HIZENTRA [Suspect]
     Active Substance: HUMAN IMMUNOGLOBULIN G
     Indication: IMMUNE SYSTEM DISORDER
     Dosage: ?          OTHER FREQUENCY:WEEKLY;?
     Route: 058
     Dates: start: 20171119, end: 20171126

REACTIONS (9)
  - Infusion site discharge [None]
  - Injection site reaction [None]
  - Infusion site pain [None]
  - Infusion site vesicles [None]
  - Infusion site erythema [None]
  - Infusion site bruising [None]
  - Infusion site induration [None]
  - Infusion site swelling [None]
  - Product quality issue [None]

NARRATIVE: CASE EVENT DATE: 20171126
